FAERS Safety Report 7088489-3 (Version None)
Quarter: 2010Q4

REPORT INFORMATION
  Report Type: 
  Country: None (occurrence: None)
  Receive Date: 20101028
  Receipt Date: 20101012
  Transmission Date: 20110411
  Serious: Yes (Hospitalization, Other)
  Sender: FDA-Public Use
  Company Number: ACO_00936_2010

PATIENT
  Sex: Female
  Weight: 63.5036 kg

DRUGS (5)
  1. AMPYRA [Suspect]
     Indication: MULTIPLE SCLEROSIS
     Dosage: 10 MG BID ORAL, 10 MG QD ORAL
     Route: 048
     Dates: start: 20100430, end: 20100526
  2. AMPYRA [Suspect]
     Indication: MULTIPLE SCLEROSIS
     Dosage: 10 MG BID ORAL, 10 MG QD ORAL
     Route: 048
     Dates: start: 20100901
  3. DEPAKOTE [Concomitant]
  4. CYMBALTA [Concomitant]
  5. KLONOPIN [Concomitant]

REACTIONS (3)
  - INSOMNIA [None]
  - MYOCLONUS [None]
  - PANIC ATTACK [None]
